FAERS Safety Report 19727062 (Version 1)
Quarter: 2021Q3

REPORT INFORMATION
  Report Type: Spontaneous
  Country: US (occurrence: US)
  Receive Date: 20210819
  Receipt Date: 20210819
  Transmission Date: 20211014
  Serious: No
  Sender: FDA-Public Use
  Company Number: US-ARBOR PHARMACEUTICALS, LLC-US-2021ARB000161

PATIENT
  Age: 7 Year
  Sex: Female

DRUGS (8)
  1. TRIPTODUR [Suspect]
     Active Substance: TRIPTORELIN
     Indication: PRECOCIOUS PUBERTY
     Dosage: UNK, SINGLE, EVERY 6 MONTHS
     Route: 030
     Dates: start: 20210205, end: 20210205
  2. TRIPTODUR [Suspect]
     Active Substance: TRIPTORELIN
  3. ROCALTROL [Concomitant]
     Active Substance: CALCITRIOL
     Indication: HYPERPARATHYROIDISM
     Dosage: 0.2 ML, TID
     Route: 048
     Dates: start: 20200909
  4. VASOTEC [Concomitant]
     Active Substance: ENALAPRIL MALEATE
     Indication: CHRONIC KIDNEY DISEASE
     Dosage: 2.5 MG, QD
     Route: 048
     Dates: start: 20200909
  5. MIRALAX [Concomitant]
     Active Substance: POLYETHYLENE GLYCOL 3350
     Indication: CONSTIPATION
     Dosage: UNK
     Route: 048
  6. MULTIVITAMIN                       /00097801/ [Concomitant]
     Active Substance: VITAMINS
     Indication: PRODUCT USED FOR UNKNOWN INDICATION
     Dosage: 5 MG, QD
     Route: 048
  7. TRIPTODUR [Suspect]
     Active Substance: TRIPTORELIN
  8. BICITRA                            /00586801/ [Concomitant]
     Active Substance: CITRIC ACID MONOHYDRATE\SODIUM CITRATE
     Indication: RENAL TUBULAR ACIDOSIS
     Dosage: 8 ML, TID
     Route: 048
     Dates: start: 20191021

REACTIONS (2)
  - Needle issue [Unknown]
  - Incorrect dose administered [Unknown]

NARRATIVE: CASE EVENT DATE: 20210205
